FAERS Safety Report 23488208 (Version 1)
Quarter: 2024Q1

REPORT INFORMATION
  Report Type: Spontaneous
  Country: US (occurrence: US)
  Receive Date: 20240206
  Receipt Date: 20240206
  Transmission Date: 20240410
  Serious: No
  Sender: FDA-Public Use
  Company Number: US-SA-SAC20240129001035

PATIENT
  Age: 61 Year
  Sex: Female
  Weight: 74.83 kg

DRUGS (1)
  1. DUPIXENT [Suspect]
     Active Substance: DUPILUMAB
     Indication: Eosinophilic oesophagitis
     Dosage: 300 MG, QW
     Route: 058
     Dates: start: 20240102

REACTIONS (3)
  - Injection site warmth [Recovering/Resolving]
  - Injection site rash [Recovering/Resolving]
  - Injection site pruritus [Recovering/Resolving]

NARRATIVE: CASE EVENT DATE: 20240124
